FAERS Safety Report 10419739 (Version 2)
Quarter: 2015Q2

REPORT INFORMATION
  Report Type: Spontaneous
  Country: US (occurrence: None)
  Receive Date: 20140625
  Receipt Date: 20150625
  Transmission Date: 20150821
  Serious: No
  Sender: FDA-Public Use
  Company Number: A-US2014-94902

PATIENT
  Age: 75 Year
  Sex: Female

DRUGS (5)
  1. TYVASO (TREPROSTINE SODIUM) [Concomitant]
  2. OPSUMIT [Suspect]
     Active Substance: MACITENTAN
     Indication: PULMONARY ARTERIAL HYPERTENSION
     Route: 048
     Dates: start: 20131110
  3. OXYGEN. [Concomitant]
     Active Substance: OXYGEN
  4. ASPIRIN (ACETYLSALICYLIC ACID) [Concomitant]
     Active Substance: ASPIRIN
  5. RIOCIGUAT (RIOCIGUAT) [Concomitant]
     Active Substance: RIOCIGUAT

REACTIONS (16)
  - Bronchitis [None]
  - Oedema peripheral [None]
  - Chest pain [None]
  - Herpes zoster [None]
  - Hypotension [None]
  - Pain [None]
  - Feeling abnormal [None]
  - Dyspnoea exertional [None]
  - Fatigue [None]
  - Pneumonia [None]
  - Dizziness [None]
  - Myalgia [None]
  - Hypersensitivity [None]
  - Fibromyalgia [None]
  - Influenza [None]
  - Dyspnoea [None]

NARRATIVE: CASE EVENT DATE: 20140208
